FAERS Safety Report 9311950 (Version 2)
Quarter: 2013Q4

REPORT INFORMATION
  Report Type: Spontaneous
  Country: JP (occurrence: JP)
  Receive Date: 20130528
  Receipt Date: 20131213
  Transmission Date: 20140711
  Serious: Yes (Life-Threatening, Hospitalization)
  Sender: FDA-Public Use
  Company Number: PHHY2013JP052519

PATIENT
  Age: 40 Year
  Sex: Male

DRUGS (2)
  1. NEORAL [Suspect]
     Indication: RENAL TRANSPLANT
  2. PREDONINE [Suspect]
     Indication: RENAL TRANSPLANT

REACTIONS (12)
  - Respiratory failure [Recovered/Resolved]
  - Hypoxia [Recovered/Resolved]
  - Shock [Recovered/Resolved]
  - Hyperkalaemia [Recovered/Resolved]
  - Electrocardiogram QRS complex prolonged [Recovered/Resolved]
  - Pulseless electrical activity [Recovered/Resolved]
  - Hepatic congestion [Recovered/Resolved]
  - Pulmonary congestion [Recovered/Resolved]
  - Feeling abnormal [Recovered/Resolved]
  - Renal failure [Recovered/Resolved]
  - Acidosis [Recovered/Resolved]
  - Pneumonia legionella [Recovered/Resolved]
